FAERS Safety Report 5256924-9 (Version None)
Quarter: 2007Q1

REPORT INFORMATION
  Report Type: 
  Country: None (occurrence: None)
  Receive Date: 20070305
  Receipt Date: 20070305
  Transmission Date: 20070707
  Serious: Yes (Other)
  Sender: FDA-Public Use
  Company Number: None

PATIENT
  Sex: Male
  Weight: 77.1115 kg

DRUGS (3)
  1. ABILIFY [Suspect]
     Indication: HALLUCINATION
     Dosage: ONE HALF TABLET -2 5MG- DAILY PO
     Route: 048
     Dates: start: 20070222, end: 20070222
  2. KLONOPIN [Concomitant]
  3. WELLBUTRIN SL [Concomitant]

REACTIONS (2)
  - HICCUPS [None]
  - PERIORBITAL OEDEMA [None]
